FAERS Safety Report 13876592 (Version 2)
Quarter: 2017Q3

REPORT INFORMATION
  Report Type: Report from Study
  Country: US (occurrence: US)
  Receive Date: 20170817
  Receipt Date: 20170821
  Transmission Date: 20171127
  Serious: No
  Sender: FDA-Public Use
  Company Number: US-B.I. PHARMACEUTICALS,INC./RIDGEFIELD-2017-BI-045167

PATIENT
  Age: 69 Year
  Sex: Female

DRUGS (6)
  1. OFEV [Suspect]
     Active Substance: NINTEDANIB
     Route: 048
     Dates: start: 20170728
  2. SIMVISTATIN [Concomitant]
     Active Substance: SIMVASTATIN
     Indication: BLOOD CHOLESTEROL INCREASED
     Dosage: ONCE DAILY;  FORM STRENGTH: 20MG; FORMULATION: TABLET
     Route: 048
  3. ASPIRIN. [Concomitant]
     Active Substance: ASPIRIN
     Indication: PRODUCT USED FOR UNKNOWN INDICATION
     Dosage: ONCE DAILY;  FORM STRENGTH: 81MG; FORMULATION: TABLET
     Route: 048
  4. NEURONTIN [Concomitant]
     Active Substance: GABAPENTIN
     Indication: NEUROPATHY PERIPHERAL
     Dosage: TWICE DAILY;  FORM STRENGTH: 100MG
  5. BIOTIN [Concomitant]
     Active Substance: BIOTIN
     Indication: PRODUCT USED FOR UNKNOWN INDICATION
     Dosage: TWICE DAILY;  FORMULATION: TABLET;
     Route: 048
  6. OFEV [Suspect]
     Active Substance: NINTEDANIB
     Indication: IDIOPATHIC PULMONARY FIBROSIS
     Dosage: TWICE DAILY;  FORMULATION: CAPSULE; ? ADMINISTRATION CORRECT? YES ?ACTION(S) TAKEN WITH PRODUCT: DOS
     Route: 048
     Dates: start: 20170807

REACTIONS (4)
  - Diarrhoea [Not Recovered/Not Resolved]
  - Diarrhoea [Not Recovered/Not Resolved]
  - Flatulence [Unknown]
  - Flatulence [Unknown]

NARRATIVE: CASE EVENT DATE: 20170729
